FAERS Safety Report 9549428 (Version 2)
Quarter: 2013Q3

REPORT INFORMATION
  Report Type: Report from Study
  Country: CA (occurrence: CA)
  Receive Date: 20130924
  Receipt Date: 20130927
  Transmission Date: 20140515
  Serious: Yes (Hospitalization, Other)
  Sender: FDA-Public Use
  Company Number: CA-JNJFOC-20130913074

PATIENT
  Age: 45 Year
  Sex: Male
  Weight: 108.2 kg

DRUGS (1)
  1. REMICADE [Suspect]
     Indication: SARCOIDOSIS
     Route: 042
     Dates: start: 20130425, end: 201309

REACTIONS (3)
  - Nocardiosis [Unknown]
  - Infection [Unknown]
  - Off label use [Unknown]
